FAERS Safety Report 12111060 (Version 2)
Quarter: 2016Q1

REPORT INFORMATION
  Report Type: Report from Study
  Country: AT (occurrence: AT)
  Receive Date: 20160224
  Receipt Date: 20160316
  Transmission Date: 20160526
  Serious: Yes (Other)
  Sender: FDA-Public Use
  Company Number: AT-AMGEN-AUTNI2016019643

PATIENT
  Age: 69 Year
  Sex: Female

DRUGS (4)
  1. DENOSUMAB [Suspect]
     Active Substance: DENOSUMAB
     Indication: PROPHYLAXIS
     Dosage: 120 MG, QWK
     Route: 058
     Dates: start: 20150804
  2. AVASTIN [Concomitant]
     Active Substance: BEVACIZUMAB
  3. XARELTO [Concomitant]
     Active Substance: RIVAROXABAN
  4. XELODA [Concomitant]
     Active Substance: CAPECITABINE

REACTIONS (1)
  - Osteonecrosis of jaw [Not Recovered/Not Resolved]

NARRATIVE: CASE EVENT DATE: 20160115
